FAERS Safety Report 13583021 (Version 3)
Quarter: 2017Q4

REPORT INFORMATION
  Report Type: Report from Study
  Country: US (occurrence: US)
  Receive Date: 20170525
  Receipt Date: 20171124
  Transmission Date: 20180320
  Serious: Yes (Death, Hospitalization)
  Sender: FDA-Public Use
  Company Number: US-ACTELION-A-NJ2017-148961

PATIENT
  Age: 84 Year
  Sex: Male
  Weight: 105.67 kg

DRUGS (3)
  1. WARFARIN [Concomitant]
     Active Substance: WARFARIN
  2. ADCIRCA [Concomitant]
     Active Substance: TADALAFIL
  3. TRACLEER [Suspect]
     Active Substance: BOSENTAN
     Indication: PULMONARY HYPERTENSION
     Dosage: 125 MG, BID
     Route: 048
     Dates: start: 20111114

REACTIONS (13)
  - Death [Fatal]
  - Dehydration [Unknown]
  - Oedema peripheral [Not Recovered/Not Resolved]
  - Feeling abnormal [Unknown]
  - Back injury [Recovering/Resolving]
  - Pneumonia [Unknown]
  - Cardiac failure congestive [Unknown]
  - Anaemia [Not Recovered/Not Resolved]
  - Renal failure [Not Recovered/Not Resolved]
  - Syncope [Unknown]
  - Arteriovenous fistula operation [Unknown]
  - Vomiting [Unknown]
  - Walking disability [Recovering/Resolving]

NARRATIVE: CASE EVENT DATE: 20171109
